FAERS Safety Report 6569022-9 (Version None)
Quarter: 2010Q1

REPORT INFORMATION
  Report Type: 
  Country: None (occurrence: None)
  Receive Date: 20100203
  Receipt Date: 20100128
  Transmission Date: 20100710
  Serious: Yes (Other)
  Sender: FDA-Public Use
  Company Number: BR-ABBOTT-10P-020-0622933-00

PATIENT
  Sex: Female
  Weight: 48 kg

DRUGS (4)
  1. HUMIRA [Suspect]
     Indication: RHEUMATOID ARTHRITIS
     Route: 058
     Dates: start: 20091128
  2. DEFLAZACORT,NIMESULIDE,FAMOTIDINE,HYDROXYCHLOROQUINE [Concomitant]
     Indication: RHEUMATOID ARTHRITIS
     Dosage: 10MG/100MG/20MG/200MG
     Route: 048
  3. NIMESULIDE, FAMOTIDINE, HYDROXYCHLOROQUINE [Concomitant]
     Indication: RHEUMATOID ARTHRITIS
     Dosage: 100MG20MG/200MG
     Route: 048
  4. ZOLEDRONIC ACID [Concomitant]
     Indication: OSTEOPOROSIS

REACTIONS (3)
  - THERAPEUTIC RESPONSE DELAYED [None]
  - TOOTH EXTRACTION [None]
  - WRONG TECHNIQUE IN DRUG USAGE PROCESS [None]
